FAERS Safety Report 6819324-3 (Version None)
Quarter: 2010Q2

REPORT INFORMATION
  Report Type: 
  Country: None (occurrence: None)
  Receive Date: 20100630
  Receipt Date: 20100615
  Transmission Date: 20101027
  Serious: Yes (Hospitalization)
  Sender: FDA-Public Use
  Company Number: 2010AL003596

PATIENT
  Age: 29 Year
  Sex: Female

DRUGS (1)
  1. PROPYLTHIOURACIL TAB [Suspect]
     Indication: BASEDOW'S DISEASE

REACTIONS (9)
  - ANTINUCLEAR ANTIBODY POSITIVE [None]
  - DRUG EXPOSURE DURING PREGNANCY [None]
  - GLOMERULONEPHRITIS RAPIDLY PROGRESSIVE [None]
  - NECK MASS [None]
  - ORTNER'S SYNDROME [None]
  - PREGNANCY [None]
  - PYODERMA GANGRENOSUM [None]
  - RENAL FAILURE [None]
  - TAKAYASU'S ARTERITIS [None]
